FAERS Safety Report 6690639-5 (Version None)
Quarter: 2010Q2

REPORT INFORMATION
  Report Type: 
  Country: None (occurrence: None)
  Receive Date: 20100421
  Receipt Date: 20100413
  Transmission Date: 20101027
  Serious: Yes (Hospitalization)
  Sender: FDA-Public Use
  Company Number: US-SANOFI-AVENTIS-A03200903305

PATIENT
  Sex: Female

DRUGS (1)
  1. CLOPIDOGREL BISULFATE [Suspect]
     Dosage: UNIT DOSE: 75 MG
     Route: 048

REACTIONS (3)
  - CLOSTRIDIUM DIFFICILE COLITIS [None]
  - DIARRHOEA [None]
  - OFF LABEL USE [None]
